FAERS Safety Report 18104003 (Version 2)
Quarter: 2020Q3

REPORT INFORMATION
  Report Type: Spontaneous
  Country: US (occurrence: US)
  Receive Date: 20200803
  Receipt Date: 20200813
  Transmission Date: 20201103
  Serious: No
  Sender: FDA-Public Use
  Company Number: US-TEVA-2020-US-1811170

PATIENT
  Sex: Female

DRUGS (1)
  1. HYDROXYCHLOROQUINE (PRASCO) [Suspect]
     Active Substance: HYDROXYCHLOROQUINE SULFATE
     Route: 065

REACTIONS (1)
  - Rash [Unknown]
